FAERS Safety Report 23942571 (Version 1)
Quarter: 2024Q2

REPORT INFORMATION
  Report Type: Spontaneous
  Country: US (occurrence: None)
  Receive Date: 20240605
  Receipt Date: 20240605
  Transmission Date: 20240716
  Serious: No
  Sender: FDA-Public Use
  Company Number: None

PATIENT

DRUGS (2)
  1. STERILE WATER FOR INJECTION [Suspect]
     Active Substance: WATER
  2. STERILE WATER FOR IRRIGATION [Concomitant]
     Active Substance: WATER

REACTIONS (2)
  - Product appearance confusion [None]
  - Product label issue [None]
